FAERS Safety Report 4697472-4 (Version None)
Quarter: 2005Q2

REPORT INFORMATION
  Report Type: 
  Country: None (occurrence: None)
  Receive Date: 20050621
  Receipt Date: 20050606
  Transmission Date: 20051028
  Serious: Yes (Hospitalization, Other)
  Sender: FDA-Public Use
  Company Number: USA020921125

PATIENT
  Age: 61 Year
  Sex: Male
  Weight: 108 kg

DRUGS (2)
  1. HUMALOG [Suspect]
     Indication: DIABETES MELLITUS
     Dosage: 40 U/4 DAY
  2. EXTENDRYL [Concomitant]

REACTIONS (10)
  - APPENDICITIS PERFORATED [None]
  - BLOOD PRESSURE INCREASED [None]
  - DIABETES MELLITUS INADEQUATE CONTROL [None]
  - ESCHERICHIA INFECTION [None]
  - FOOD POISONING [None]
  - HEART RATE INCREASED [None]
  - INADEQUATE DIET [None]
  - PHARMACEUTICAL PRODUCT COMPLAINT [None]
  - SCAR [None]
  - SEASONAL ALLERGY [None]
